FAERS Safety Report 16664566 (Version 4)
Quarter: 2019Q4

REPORT INFORMATION
  Report Type: Report from Study
  Country: None (occurrence: BR)
  Receive Date: 20190802
  Receipt Date: 20191129
  Transmission Date: 20200122
  Serious: Yes (Congenital Anomaly)
  Sender: FDA-Public Use
  Company Number: BR-ABBVIE-19K-020-2867844-00

PATIENT
  Sex: Male

DRUGS (7)
  1. ATAZANAVIR. [Suspect]
     Active Substance: ATAZANAVIR
     Indication: MATERNAL EXPOSURE TIMING UNSPECIFIED
     Route: 064
     Dates: start: 20120828
  2. LAMIVUDINE AND TENOFOVIR DISOPROXIL FUMARATE [Suspect]
     Active Substance: LAMIVUDINE\TENOFOVIR DISOPROXIL FUMARATE
     Indication: MATERNAL EXPOSURE TIMING UNSPECIFIED
     Route: 064
     Dates: start: 20120828
  3. CEPHALEXIN. [Concomitant]
     Active Substance: CEPHALEXIN
     Indication: MATERNAL EXPOSURE TIMING UNSPECIFIED
     Dates: start: 2019
  4. RITONAVIR. [Suspect]
     Active Substance: RITONAVIR
     Indication: MATERNAL EXPOSURE TIMING UNSPECIFIED
     Route: 064
     Dates: start: 20120828
  5. NITROFURANTOIN. [Concomitant]
     Active Substance: NITROFURANTOIN
     Indication: MATERNAL EXPOSURE TIMING UNSPECIFIED
     Dates: start: 2019
  6. CAPTOPRIL. [Concomitant]
     Active Substance: CAPTOPRIL
     Indication: MATERNAL EXPOSURE TIMING UNSPECIFIED
  7. METHYLDOPAMINE [Concomitant]
     Active Substance: DEOXYEPINEPHRINE HYDROCHLORIDE
     Indication: MATERNAL EXPOSURE TIMING UNSPECIFIED
     Dates: start: 2019

REACTIONS (7)
  - Cerebellar hypoplasia [Unknown]
  - Benign enlargement of the subarachnoid spaces [Unknown]
  - Foetal exposure during pregnancy [Unknown]
  - Cerebral disorder [Unknown]
  - Polyhydramnios [Unknown]
  - Dandy-Walker syndrome [Unknown]
  - Trisomy 21 [Unknown]

NARRATIVE: CASE EVENT DATE: 2019
